FAERS Safety Report 25180888 (Version 2)
Quarter: 2025Q2

REPORT INFORMATION
  Report Type: Spontaneous
  Country: JP (occurrence: JP)
  Receive Date: 20250409
  Receipt Date: 20250528
  Transmission Date: 20250716
  Serious: Yes (Other)
  Sender: SANOFI AVENTIS
  Company Number: JP-SA-2025SA098888

PATIENT
  Age: 16 Year
  Sex: Male

DRUGS (6)
  1. DUPIXENT [Suspect]
     Active Substance: DUPILUMAB
     Indication: Dermatitis atopic
     Route: 058
     Dates: start: 20250203
  2. DUPIXENT [Suspect]
     Active Substance: DUPILUMAB
     Dosage: 300 MG, QOW
     Route: 058
  3. OLOPATADINE HYDROCHLORIDE [Concomitant]
     Active Substance: OLOPATADINE HYDROCHLORIDE
     Indication: Dermatitis atopic
     Dosage: 5 MG, BID
     Route: 048
  4. MONTELUKAST SODIUM [Concomitant]
     Active Substance: MONTELUKAST SODIUM
     Indication: Dermatitis atopic
     Dosage: 10 MG, QD
     Route: 048
  5. MONTELUKAST SODIUM [Concomitant]
     Active Substance: MONTELUKAST SODIUM
     Indication: Asthma
  6. FLUTICASONE PROPIONATE [Concomitant]
     Active Substance: FLUTICASONE PROPIONATE
     Indication: Asthma
     Dosage: UNK UNK, QD
     Route: 055

REACTIONS (2)
  - Atopic cataract [Not Recovered/Not Resolved]
  - Visual acuity reduced [Not Recovered/Not Resolved]

NARRATIVE: CASE EVENT DATE: 20250301
